FAERS Safety Report 5064576-6 (Version None)
Quarter: 2006Q3

REPORT INFORMATION
  Report Type: 
  Country: None (occurrence: None)
  Receive Date: 20060728
  Receipt Date: 20060713
  Transmission Date: 20061208
  Serious: Yes (Hospitalization)
  Sender: FDA-Public Use
  Company Number: CH-JNJFOC-20060705583

PATIENT
  Age: 93 Year
  Sex: Male
  Weight: 73 kg

DRUGS (9)
  1. TRAMADOL HCL [Suspect]
     Indication: PAIN
     Route: 048
  2. TEMGESIC [Suspect]
     Indication: PAIN
     Route: 060
  3. TRILEPTAL [Suspect]
     Indication: PAIN
     Route: 048
  4. ESCITALOPRAM OXALATE [Suspect]
     Indication: DRUG USE FOR UNKNOWN INDICATION
     Route: 048
  5. SURMONTIL [Concomitant]
     Indication: PAIN
     Route: 048
  6. BRUFEN [Concomitant]
     Indication: PAIN
     Route: 048
  7. XATRAL [Concomitant]
     Indication: BENIGN PROSTATIC HYPERPLASIA
     Route: 048
  8. RISPERDAL [Concomitant]
     Indication: DELIRIUM
     Route: 048
  9. LYRICA [Concomitant]
     Indication: PAIN
     Route: 048

REACTIONS (6)
  - CONFUSIONAL STATE [None]
  - DELIRIUM [None]
  - DISORIENTATION [None]
  - FATIGUE [None]
  - HALLUCINATION [None]
  - SLEEP DISORDER [None]
